FAERS Safety Report 9224585 (Version 1)
Quarter: 2013Q1

REPORT INFORMATION
  Report Type: Spontaneous
  Country: US (occurrence: None)
  Receive Date: 20120917
  Receipt Date: 20120917
  Transmission Date: 20140127
  Serious: Yes (Other)
  Sender: FDA-Public Use
  Company Number: 1000026984

PATIENT
  Age: 56 Year
  Sex: Male

DRUGS (8)
  1. CELEXA (CITALOPRAM HYDROBROMIDE) (20 MILLIGRAM, TABLETS) [Suspect]
     Indication: DEPRESSION
     Route: 048
     Dates: end: 20111225
  2. NORVASC (AMLODIPINE BESILATE) (AMLODIPINE BESILATE) [Concomitant]
  3. CLONIDINE (CLONIDINE) (CLONIDINE) [Concomitant]
  4. DEPAKOTE (VALPROATE SEMISODIUM) (VALPROATE SEMISODIUM) [Concomitant]
  5. HYDRALAZINE (HYDRALAZINE) (HYDRALAZINE) [Concomitant]
  6. LISINOPRIL (LISINIOPRIL) (LISINOPRIL) [Concomitant]
  7. METHADONE (METHADONE) (METHADONE) [Concomitant]
  8. ALBUTEROL (ALBUTEROL) (ALBUTEROL) [Concomitant]

REACTIONS (1)
  - Hypoglycaemia [None]
